FAERS Safety Report 7366489-3 (Version None)
Quarter: 2011Q1

REPORT INFORMATION
  Report Type: 
  Country: None (occurrence: None)
  Receive Date: 20110322
  Receipt Date: 20110216
  Transmission Date: 20110831
  Serious: Yes (Hospitalization, Other)
  Sender: FDA-Public Use
  Company Number: US-BAYER-201033783NA

PATIENT
  Sex: Female

DRUGS (9)
  1. YASMIN [Suspect]
     Indication: PRODUCT USED FOR UNKNOWN INDICATION
     Route: 048
  2. IMITREX [Concomitant]
     Indication: MIGRAINE
  3. ALLEGRA [Concomitant]
     Dosage: 180 MG, UNK
  4. DITROPAN XL [Concomitant]
     Dosage: 15 MG, UNK
  5. VICODIN [Concomitant]
     Indication: PAIN
  6. YAZ [Suspect]
     Indication: PRODUCT USED FOR UNKNOWN INDICATION
     Route: 048
  7. INDERAL [Concomitant]
  8. VOLTAREN [Concomitant]
  9. HYDROXYZINE [Concomitant]
     Indication: URTICARIA
     Dosage: 25 MG, UNK

REACTIONS (3)
  - ISCHAEMIA [None]
  - INJURY [None]
  - VARICOSE VEIN [None]
